FAERS Safety Report 16890224 (Version 1)
Quarter: 2019Q4

REPORT INFORMATION
  Report Type: Spontaneous
  Country: US (occurrence: US)
  Receive Date: 20190812
  Receipt Date: 20190812
  Transmission Date: 20200122
  Serious: No
  Sender: FDA-Public Use
  Company Number: None

PATIENT

DRUGS (1)
  1. HYDROMORPHONE HCL [Suspect]
     Active Substance: HYDROMORPHONE HYDROCHLORIDE

REACTIONS (6)
  - Product label confusion [None]
  - Incorrect dose administered [None]
  - Product preparation error [None]
  - Device programming error [None]
  - Device computer issue [None]
  - Incorrect drug administration rate [None]
